FAERS Safety Report 9018567 (Version 1)
Quarter: 2013Q1

REPORT INFORMATION
  Report Type: Spontaneous
  Country: NL (occurrence: NL)
  Receive Date: 20130118
  Receipt Date: 20130118
  Transmission Date: 20140127
  Serious: Yes (Other)
  Sender: FDA-Public Use
  Company Number: NL-PFIZER INC-2013017802

PATIENT
  Sex: Female

DRUGS (1)
  1. ATORVASTATIN PFIZER [Suspect]
     Dosage: 20 MG, UNK

REACTIONS (3)
  - Eye haemorrhage [Unknown]
  - Abdominal pain [Unknown]
  - Flatulence [Unknown]
